FAERS Safety Report 5186562-8 (Version None)
Quarter: 2006Q4

REPORT INFORMATION
  Report Type: 
  Country: None (occurrence: None)
  Receive Date: 20061213
  Receipt Date: 20061130
  Transmission Date: 20070319
  Serious: Yes (Life-Threatening, Other)
  Sender: FDA-Public Use
  Company Number: 2006RR-04737

PATIENT
  Age: 48 Year
  Sex: Male
  Weight: 80 kg

DRUGS (7)
  1. CLARITHROMYCIN [Suspect]
     Indication: DRUG USE FOR UNKNOWN INDICATION
     Dosage: 1 G, INTRAVENOUS
     Route: 042
     Dates: start: 20060830, end: 20060830
  2. APROTININ [Suspect]
     Indication: DRUG USE FOR UNKNOWN INDICATION
     Dosage: 10000 IU, INTRAVENOUS
     Route: 042
     Dates: start: 20060830
  3. ROCURONIUM (ROCURONIUM) [Suspect]
     Indication: DRUG USE FOR UNKNOWN INDICATION
     Dosage: 60 MG, INTRAVENOUS
     Route: 042
     Dates: start: 20060830, end: 20060830
  4. ASPIRIN [Concomitant]
  5. ATENOLOL [Concomitant]
  6. ATORVASTATIN CALCIUM [Concomitant]
  7. BETAHISTINE (BETAHISTINE) [Concomitant]

REACTIONS (2)
  - HYPOTENSION [None]
  - TACHYCARDIA [None]
